FAERS Safety Report 18813865 (Version 1)
Quarter: 2021Q1

REPORT INFORMATION
  Report Type: Spontaneous
  Country: US (occurrence: US)
  Receive Date: 20210201
  Receipt Date: 20210201
  Transmission Date: 20210419
  Serious: Yes (Other)
  Sender: FDA-Public Use
  Company Number: US-SA-2021SA026458

PATIENT
  Age: 74 Year
  Sex: Male

DRUGS (1)
  1. MULTAQ [Suspect]
     Active Substance: DRONEDARONE
     Indication: ATRIAL FIBRILLATION
     Dosage: DRUG STRUCTURE DOSAGE : 400 MG DRUG INTERVAL DOSAGE : TWICE A DAY DRUG TREATMENT DURATION: NA
     Dates: start: 2013

REACTIONS (2)
  - Bradycardia [Unknown]
  - Arrhythmia [Unknown]
